FAERS Safety Report 11504313 (Version 1)
Quarter: 2015Q3

REPORT INFORMATION
  Report Type: Report from Study
  Country: US (occurrence: US)
  Receive Date: 20150915
  Receipt Date: 20150915
  Transmission Date: 20151125
  Serious: Yes (Death)
  Sender: FDA-Public Use
  Company Number: US-ROCHE-1518060

PATIENT
  Age: 46 Year
  Sex: Female
  Weight: 73.55 kg

DRUGS (5)
  1. DOXORUBICIN [Concomitant]
     Active Substance: DOXORUBICIN
     Indication: NON-HODGKIN^S LYMPHOMA
     Dosage: ON HER 4TH CYCLE
     Route: 042
  2. VINCRISTINE [Concomitant]
     Active Substance: VINCRISTINE
     Indication: NON-HODGKIN^S LYMPHOMA
     Dosage: ON HER 4TH CYCLE
     Route: 042
  3. PREDNISONE. [Concomitant]
     Active Substance: PREDNISONE
     Indication: NON-HODGKIN^S LYMPHOMA
     Dosage: ON HER 4TH CYCLE
     Route: 042
  4. RITUXAN [Suspect]
     Active Substance: RITUXIMAB
     Indication: NON-HODGKIN^S LYMPHOMA
     Dosage: HAS TAKEN 4 CYCLES OF RITUXAN
     Route: 042
  5. CYCLOPHOSPHAMIDE. [Concomitant]
     Active Substance: CYCLOPHOSPHAMIDE
     Indication: NON-HODGKIN^S LYMPHOMA
     Dosage: ON HER 4TH CYCLE
     Route: 042

REACTIONS (15)
  - Constipation [Unknown]
  - Memory impairment [Unknown]
  - Pain [Not Recovered/Not Resolved]
  - Candida infection [Unknown]
  - Dizziness [Unknown]
  - Fatigue [Unknown]
  - Anal ulcer [Unknown]
  - Fungal infection [Unknown]
  - Disturbance in attention [Not Recovered/Not Resolved]
  - Nausea [Not Recovered/Not Resolved]
  - Genital infection [Unknown]
  - Visual acuity reduced [Not Recovered/Not Resolved]
  - Death [Fatal]
  - Stomatitis [Unknown]
  - Chills [Unknown]

NARRATIVE: CASE EVENT DATE: 20150531
